FAERS Safety Report 24651062 (Version 2)
Quarter: 2024Q4

REPORT INFORMATION
  Report Type: Spontaneous
  Country: US (occurrence: US)
  Receive Date: 20241122
  Receipt Date: 20241206
  Transmission Date: 20250114
  Serious: Yes (Life-Threatening, Hospitalization)
  Sender: BOEHRINGER INGELHEIM
  Company Number: US-Komodo Health-a23aa000004NzLSAA0

PATIENT
  Age: 60 Year
  Sex: Female

DRUGS (1)
  1. JARDIANCE [Suspect]
     Active Substance: EMPAGLIFLOZIN
     Indication: Type 2 diabetes mellitus
     Dosage: 10 MG
     Dates: start: 20241120, end: 20241120

REACTIONS (8)
  - Throat tightness [Recovering/Resolving]
  - Speech disorder [Unknown]
  - Wrong technique in product usage process [Unknown]
  - Pollakiuria [Recovered/Resolved]
  - Thirst [Recovered/Resolved]
  - Dysphagia [Not Recovered/Not Resolved]
  - Paranoia [Unknown]
  - Drug hypersensitivity [Unknown]

NARRATIVE: CASE EVENT DATE: 20241101
